FAERS Safety Report 21321693 (Version 6)
Quarter: 2023Q4

REPORT INFORMATION
  Report Type: Report from Study
  Country: CO (occurrence: CO)
  Receive Date: 20220912
  Receipt Date: 20231024
  Transmission Date: 20240110
  Serious: Yes (Death, Hospitalization, Other)
  Sender: FDA-Public Use
  Company Number: CO-NOVARTISPH-NVSC2022CO204794

PATIENT
  Age: 66 Year
  Sex: Male
  Weight: 76 kg

DRUGS (13)
  1. ELTROMBOPAG OLAMINE [Suspect]
     Active Substance: ELTROMBOPAG OLAMINE
     Indication: Immune thrombocytopenia
     Dosage: 2 DOSAGE FORM, QD
     Route: 048
  2. ELTROMBOPAG OLAMINE [Suspect]
     Active Substance: ELTROMBOPAG OLAMINE
     Dosage: 50 MG, TID
     Route: 048
  3. ELTROMBOPAG OLAMINE [Suspect]
     Active Substance: ELTROMBOPAG OLAMINE
     Dosage: 50 MG, TID
     Route: 048
     Dates: start: 2018
  4. ELTROMBOPAG OLAMINE [Suspect]
     Active Substance: ELTROMBOPAG OLAMINE
     Dosage: 1 DOSAGE FORM, Q8H
     Route: 048
     Dates: start: 2019
  5. ELTROMBOPAG OLAMINE [Suspect]
     Active Substance: ELTROMBOPAG OLAMINE
     Dosage: 150 MG, QD
     Route: 048
  6. ATORVASTATIN [Suspect]
     Active Substance: ATORVASTATIN
     Indication: Atrioventricular block
     Dosage: 40 MG, QD
     Route: 048
  7. ERYTHROPOIETIN [Concomitant]
     Active Substance: ERYTHROPOIETIN
     Indication: Red blood cell count abnormal
     Dosage: 30000 IU (EVERY 8 DAYS)
     Route: 058
     Dates: start: 202206
  8. SAXAGLIPTIN [Concomitant]
     Active Substance: SAXAGLIPTIN
     Indication: Diabetes mellitus
     Dosage: UNK, QD
     Route: 048
  9. FUROSEMIDE [Concomitant]
     Active Substance: FUROSEMIDE
     Indication: Renal disorder
     Dosage: 40 MG, QD
     Route: 048
  10. IRBESARTAN [Concomitant]
     Active Substance: IRBESARTAN
     Indication: Hypertension
     Dosage: 150 MG, QD
     Route: 048
  11. INSULIN NOS [Concomitant]
     Active Substance: INSULIN NOS
     Indication: Diabetes mellitus
     Dosage: UNK, QD (12)
     Route: 058
  12. PRAZOSIN [Concomitant]
     Active Substance: PRAZOSIN
     Indication: Hypertension
     Dosage: UNK, QD
     Route: 048
  13. METOPROLOL SUCCINATE [Concomitant]
     Active Substance: METOPROLOL SUCCINATE
     Indication: Cardiac disorder
     Dosage: UNK, BID
     Route: 048

REACTIONS (14)
  - Death [Fatal]
  - Platelet count decreased [Unknown]
  - Inappropriate schedule of product administration [Unknown]
  - Arrhythmia [Recovering/Resolving]
  - Angina pectoris [Unknown]
  - Oral mucosal blistering [Unknown]
  - Tongue blistering [Unknown]
  - Petechiae [Unknown]
  - Pruritus [Unknown]
  - Blood creatinine abnormal [Unknown]
  - Drug intolerance [Unknown]
  - Nausea [Unknown]
  - Incorrect dose administered [Unknown]
  - Product supply issue [Unknown]

NARRATIVE: CASE EVENT DATE: 20220921
